FAERS Safety Report 7319859-3 (Version None)
Quarter: 2011Q1

REPORT INFORMATION
  Report Type: 
  Country: None (occurrence: None)
  Receive Date: 20110228
  Receipt Date: 20101021
  Transmission Date: 20110831
  Serious: No
  Sender: FDA-Public Use
  Company Number: A0889450A

PATIENT
  Age: 56 Year
  Sex: Female
  Weight: 53.6 kg

DRUGS (2)
  1. LAMICTAL [Suspect]
  2. DEPAKOTE ER [Suspect]
     Dosage: 250MG TWICE PER DAY

REACTIONS (3)
  - INSOMNIA [None]
  - DRUG INTERACTION [None]
  - DRUG LEVEL INCREASED [None]
